FAERS Safety Report 10012174 (Version 2)
Quarter: 2014Q1

REPORT INFORMATION
  Report Type: Spontaneous
  Country: JP (occurrence: JP)
  Receive Date: 20140314
  Receipt Date: 20140326
  Transmission Date: 20141002
  Serious: Yes (Other)
  Sender: FDA-Public Use
  Company Number: JP-VIIV HEALTHCARE LIMITED-B0973807A

PATIENT
  Age: 43 Year
  Sex: Male

DRUGS (3)
  1. EPZICOM [Suspect]
     Indication: HIV INFECTION
     Route: 048
     Dates: start: 20070219, end: 20081026
  2. REYATAZ [Concomitant]
     Indication: HIV INFECTION
     Route: 048
     Dates: start: 20070219, end: 20081026
  3. TRUVADA [Concomitant]
     Indication: HIV INFECTION
     Route: 048
     Dates: start: 20070219, end: 20081026

REACTIONS (9)
  - Lactic acidosis [Recovered/Resolved]
  - Blood triglycerides increased [Recovered/Resolved]
  - Nausea [Recovered/Resolved]
  - Hypoaesthesia oral [Recovered/Resolved]
  - Gastric pH decreased [Unknown]
  - Malaise [Unknown]
  - Vomiting [Unknown]
  - Paraesthesia oral [Unknown]
  - Abdominal pain upper [Unknown]
